FAERS Safety Report 16377127 (Version 2)
Quarter: 2019Q3

REPORT INFORMATION
  Report Type: Spontaneous
  Country: US (occurrence: US)
  Receive Date: 20190531
  Receipt Date: 20190705
  Transmission Date: 20191004
  Serious: No
  Sender: FDA-Public Use
  Company Number: US-ASTRAZENECA-2019SE68797

PATIENT
  Sex: Female
  Weight: 68 kg

DRUGS (5)
  1. ALBUTEROL INHALER [Suspect]
     Active Substance: ALBUTEROL
     Indication: DYSPNOEA
     Dosage: 17.0G AS REQUIRED
     Route: 055
  2. DILTIAZEM. [Concomitant]
     Active Substance: DILTIAZEM
     Indication: CARDIAC DISORDER
     Route: 048
  3. SYMBICORT [Suspect]
     Active Substance: BUDESONIDE\FORMOTEROL FUMARATE DIHYDRATE
     Indication: ASTHMA
     Dosage: 160/4.5 MCG 1 PUFF IN THE MORNING AND 1 PUFF AT NIGHT
     Route: 055
  4. FUROSEMIDE. [Concomitant]
     Active Substance: FUROSEMIDE
     Indication: CARDIAC DISORDER
     Route: 048
  5. WARFARIN [Concomitant]
     Active Substance: WARFARIN
     Indication: SURGERY
     Route: 048
     Dates: start: 1999

REACTIONS (8)
  - Dyspnoea [Unknown]
  - Intentional product misuse [Unknown]
  - Hypersensitivity [Unknown]
  - Off label use [Unknown]
  - Device issue [Unknown]
  - Pulmonary congestion [Not Recovered/Not Resolved]
  - Nervousness [Unknown]
  - Product dose omission [Not Recovered/Not Resolved]
